FAERS Safety Report 18292847 (Version 1)
Quarter: 2020Q3

REPORT INFORMATION
  Report Type: Spontaneous
  Country: US (occurrence: US)
  Receive Date: 20200921
  Receipt Date: 20200921
  Transmission Date: 20201103
  Serious: Yes (Other)
  Sender: FDA-Public Use
  Company Number: None

PATIENT
  Age: 47 Year
  Sex: Female
  Weight: 85.08 kg

DRUGS (23)
  1. ASPIRIN 81 MG [Concomitant]
     Active Substance: ASPIRIN
     Dates: start: 20200910, end: 20200920
  2. REMDESIVIR. [Suspect]
     Active Substance: REMDESIVIR
     Indication: COVID-19
     Dosage: ?          OTHER FREQUENCY:GIVEN TWICE;?
     Route: 040
     Dates: start: 20200912, end: 20200915
  3. DEXAMETHASONE SODIUM PHOS. [Concomitant]
     Dates: start: 20200911, end: 20200919
  4. GUAIFENESIN 600 MG [Concomitant]
     Dates: start: 20200911, end: 20200920
  5. QUETIAPINE. [Concomitant]
     Active Substance: QUETIAPINE
     Dates: start: 20200911, end: 20200920
  6. REMDESIVIR. [Suspect]
     Active Substance: REMDESIVIR
     Indication: COVID-19
     Route: 040
     Dates: start: 20200916, end: 20200916
  7. FAMOTIDINE 20 MG [Concomitant]
     Active Substance: FAMOTIDINE
     Dates: start: 20200911, end: 20200916
  8. DUONEB [Concomitant]
     Active Substance: ALBUTEROL SULFATE\IPRATROPIUM BROMIDE
     Dates: start: 20200912, end: 20200920
  9. METHOCARBAMOL. [Concomitant]
     Active Substance: METHOCARBAMOL
     Dates: start: 20200913, end: 20200920
  10. NORMAL SALINE 500 ML [Concomitant]
     Dates: start: 20200915, end: 20200915
  11. HYDRALAZINE 10 MG PRN [Concomitant]
     Dates: start: 20200910, end: 20200919
  12. HYDROCODONE/APAP PRN [Concomitant]
     Dates: start: 20200913, end: 20200920
  13. MELATONIN [Concomitant]
     Active Substance: MELATONIN
     Dates: start: 20200911, end: 20200920
  14. RIVAROXABAN [Concomitant]
     Active Substance: RIVAROXABAN
     Dates: start: 20200911, end: 20200920
  15. BUDESONIDE INHALATION [Concomitant]
     Active Substance: BUDESONIDE
     Dates: start: 20200912, end: 20200920
  16. CEFTRIAXONE 1 G [Concomitant]
     Dates: start: 20200911, end: 20200920
  17. INSULIN LISPRO SLIDING SCALE [Concomitant]
     Dates: start: 20200911, end: 20200920
  18. ZINC SULFATE. [Concomitant]
     Active Substance: ZINC SULFATE
     Dates: start: 20200911, end: 20200918
  19. CHOLECALCIFEROL 5000 INT. UNITS PO [Concomitant]
     Dates: start: 20200912, end: 20200920
  20. INSULIN GLARGINE [Concomitant]
     Active Substance: INSULIN GLARGINE
     Dates: start: 20200916, end: 20200920
  21. DOXYCYCLINE 100  MG IV [Concomitant]
     Dates: start: 20200911, end: 20200916
  22. FUROSEMIDE 40 MG X 1 [Concomitant]
     Dates: start: 20200916, end: 20200916
  23. THIAMINE. [Concomitant]
     Active Substance: THIAMINE
     Dates: start: 20200911, end: 20200920

REACTIONS (4)
  - Reticulocyte count increased [None]
  - Haptoglobin decreased [None]
  - Anaemia [None]
  - Blood lactate dehydrogenase increased [None]

NARRATIVE: CASE EVENT DATE: 20200916
